FAERS Safety Report 17008945 (Version 1)
Quarter: 2019Q4

REPORT INFORMATION
  Report Type: Report from Study
  Country: IT (occurrence: IT)
  Receive Date: 20191108
  Receipt Date: 20191108
  Transmission Date: 20200122
  Serious: Yes (Hospitalization)
  Sender: FDA-Public Use
  Company Number: IT-TECHNOMED INC.-2076628

PATIENT
  Age: 28 Year
  Sex: Female

DRUGS (2)
  1. ADALAT CC [Suspect]
     Active Substance: NIFEDIPINE
     Route: 048
     Dates: start: 20190704
  2. CATAPRES-TTS [Suspect]
     Active Substance: CLONIDINE
     Indication: GESTATIONAL HYPERTENSION
     Dates: start: 20190704, end: 20190717

REACTIONS (3)
  - Exposure during pregnancy [Unknown]
  - Pre-eclampsia [Not Recovered/Not Resolved]
  - Drug ineffective [Not Recovered/Not Resolved]
